FAERS Safety Report 20478019 (Version 1)
Quarter: 2022Q1

REPORT INFORMATION
  Report Type: Spontaneous
  Country: ES (occurrence: ES)
  Receive Date: 20220216
  Receipt Date: 20220216
  Transmission Date: 20220423
  Serious: Yes (Hospitalization, Other)
  Sender: FDA-Public Use
  Company Number: ES-AEMPS-1101576

PATIENT
  Age: 71 Year
  Sex: Male

DRUGS (8)
  1. ENALAPRIL [Suspect]
     Active Substance: ENALAPRIL
     Indication: Hypertension
     Dosage: 20 MILLIGRAM, ONCE A DAY (AT DINNER)
     Route: 048
     Dates: start: 20190227, end: 20220118
  2. ENALAPRIL\HYDROCHLOROTHIAZIDE [Suspect]
     Active Substance: ENALAPRIL\HYDROCHLOROTHIAZIDE
     Indication: Hypertension
     Dosage: 1 DOSAGE FORM, ONCE A DAY (AT BREAKFAST)
     Route: 048
     Dates: start: 20181109, end: 20220118
  3. ATORVASTATIN\EZETIMIBE [Concomitant]
     Active Substance: ATORVASTATIN\EZETIMIBE
     Indication: Dyslipidaemia
     Dosage: UNK (EVERY 24H)
     Route: 048
     Dates: start: 20191104, end: 20220128
  4. METFORMIN HYDROCHLORIDE\VILDAGLIPTIN [Concomitant]
     Active Substance: METFORMIN HYDROCHLORIDE\VILDAGLIPTIN
     Indication: Type 2 diabetes mellitus
     Dosage: UNK (EVERY 12H)
     Route: 048
     Dates: start: 20170329, end: 20220128
  5. PANTOPRAZOLE [Concomitant]
     Active Substance: PANTOPRAZOLE
     Indication: Myocardial ischaemia
     Dosage: UNK (EVERY 24H)
     Route: 048
     Dates: start: 20180430, end: 20220128
  6. BISOPROLOL [Concomitant]
     Active Substance: BISOPROLOL
     Indication: Myocardial ischaemia
     Dosage: UNK (EVERY 24H)
     Route: 048
     Dates: start: 20180409
  7. AMIODARONE [Concomitant]
     Active Substance: AMIODARONE
     Indication: Myocardial ischaemia
     Dosage: UNK (EVERY 24 H)
     Route: 048
     Dates: start: 20180409, end: 20220128
  8. ASPIRIN [Concomitant]
     Active Substance: ASPIRIN
     Indication: Myocardial ischaemia
     Dosage: UNK (EVERY 24 H)
     Route: 048
     Dates: start: 20171204, end: 20220128

REACTIONS (4)
  - Hyperkalaemia [Recovered/Resolved]
  - Acute kidney injury [Recovered/Resolved]
  - Electrocardiogram T wave peaked [Recovered/Resolved]
  - Condition aggravated [Recovered/Resolved]

NARRATIVE: CASE EVENT DATE: 20220118
